FAERS Safety Report 5355404-X (Version None)
Quarter: 2007Q2

REPORT INFORMATION
  Report Type: 
  Country: None (occurrence: None)
  Receive Date: 20070530
  Receipt Date: 20061214
  Transmission Date: 20071010
  Serious: Yes (Other)
  Sender: FDA-Public Use
  Company Number: US200609003601

PATIENT
  Age: 31 Year
  Sex: Female
  Weight: 90.7 kg

DRUGS (3)
  1. ZYPREXA [Suspect]
     Indication: DEPRESSION
     Dates: start: 20020101
  2. SEROQUEL /UNK/ (QUETIAPINE FUMARATE) [Concomitant]
  3. ZOLOFT [Concomitant]

REACTIONS (1)
  - PANCREATITIS [None]
